FAERS Safety Report 14390209 (Version 1)
Quarter: 2018Q1

REPORT INFORMATION
  Report Type: Spontaneous
  Country: US (occurrence: US)
  Receive Date: 20180116
  Receipt Date: 20180116
  Transmission Date: 20180509
  Serious: No
  Sender: FDA-Public Use
  Company Number: PHEH2018US001668

PATIENT
  Sex: Female

DRUGS (3)
  1. BETOPTIC [Concomitant]
     Active Substance: BETAXOLOL HYDROCHLORIDE
     Indication: PRODUCT USED FOR UNKNOWN INDICATION
     Route: 065
  2. GENTEAL MILD [Concomitant]
     Active Substance: HYPROMELLOSE 2910 (4000 MPA.S)
     Indication: PRODUCT USED FOR UNKNOWN INDICATION
     Route: 047
  3. ILEVRO [Suspect]
     Active Substance: NEPAFENAC
     Indication: EYE PAIN
     Route: 047

REACTIONS (2)
  - Eyelid ptosis [Unknown]
  - Concomitant disease aggravated [Unknown]
